FAERS Safety Report 20541622 (Version 1)
Quarter: 2022Q1

REPORT INFORMATION
  Report Type: Spontaneous
  Country: PK (occurrence: PK)
  Receive Date: 20220302
  Receipt Date: 20220302
  Transmission Date: 20220424
  Serious: No
  Sender: FDA-Public Use
  Company Number: PK-LUPIN PHARMACEUTICALS INC.-2022-02602

PATIENT
  Age: 24 Year
  Sex: Male

DRUGS (9)
  1. MOXIFLOXACIN [Suspect]
     Active Substance: MOXIFLOXACIN
     Indication: COVID-19
     Dosage: 400 MG, QD, INJECTION
     Route: 065
  2. DEXAMETHASONE [Suspect]
     Active Substance: DEXAMETHASONE
     Indication: COVID-19
     Dosage: 12 MG, QD
     Route: 065
  3. PIPERACILLIN SODIUM\TAZOBACTAM SODIUM [Suspect]
     Active Substance: PIPERACILLIN SODIUM\TAZOBACTAM SODIUM
     Indication: COVID-19
     Dosage: 4.5 GRAM TID, INJECTION
     Route: 065
  4. MICONAZOLE [Concomitant]
     Active Substance: MICONAZOLE
     Indication: Erythema multiforme
     Dosage: UNK, BID
     Route: 048
  5. DEXTROSE [Concomitant]
     Active Substance: DEXTROSE
     Indication: Erythema multiforme
     Dosage: 1000 MILLILITER, BID, INJECTION
     Route: 042
  6. CLOBETASOL [Concomitant]
     Active Substance: CLOBETASOL
     Indication: Erythema multiforme
     Dosage: UNK, BID
     Route: 061
  7. OMEPRAZOLE [Concomitant]
     Active Substance: OMEPRAZOLE
     Indication: Abdominal pain upper
     Dosage: 40 MG, STAT, INJECTION
     Route: 042
  8. CEFTRIAXONE [Concomitant]
     Active Substance: CEFTRIAXONE
     Indication: Antibiotic therapy
     Dosage: 1 GRAM, BID, INJECTION
     Route: 042
  9. HYDROCORTISONE [Concomitant]
     Active Substance: HYDROCORTISONE
     Indication: Product used for unknown indication
     Dosage: 100 MG, TID
     Route: 042

REACTIONS (1)
  - Off label use [Unknown]
